FAERS Safety Report 20206573 (Version 1)
Quarter: 2021Q4

REPORT INFORMATION
  Report Type: Spontaneous
  Country: US (occurrence: None)
  Receive Date: 20211218
  Receipt Date: 20211218
  Transmission Date: 20220303
  Serious: No
  Sender: FDA-Public Use
  Company Number: None

PATIENT
  Age: 48 Year
  Sex: Female
  Weight: 92.7 kg

DRUGS (1)
  1. AJOVY [Suspect]
     Active Substance: FREMANEZUMAB-VFRM
     Indication: Migraine
     Dosage: FREQUENCY : MONTHLY;?OTHER ROUTE : INJECTION;?
     Route: 050
     Dates: start: 20210913, end: 20211216

REACTIONS (7)
  - Injection site pain [None]
  - Injection site swelling [None]
  - Injection site erythema [None]
  - Injection site warmth [None]
  - Injection site pruritus [None]
  - Oedema peripheral [None]
  - Injection site reaction [None]

NARRATIVE: CASE EVENT DATE: 20211216
